FAERS Safety Report 20893800 (Version 1)
Quarter: 2022Q2

REPORT INFORMATION
  Report Type: Spontaneous
  Country: US (occurrence: US)
  Receive Date: 20220531
  Receipt Date: 20220531
  Transmission Date: 20220721
  Serious: No
  Sender: FDA-Public Use
  Company Number: US-BRISTOL-MYERS SQUIBB COMPANY-2022-032754

PATIENT
  Age: 30 Year
  Sex: Female
  Weight: 97.5 kg

DRUGS (1)
  1. OPDIVO [Suspect]
     Active Substance: NIVOLUMAB
     Indication: Product used for unknown indication
     Dosage: DOSE : 1;     FREQ : UNAVAILABLE
     Route: 065

REACTIONS (1)
  - Accidental exposure to product [Unknown]
